FAERS Safety Report 7558092-7 (Version None)
Quarter: 2011Q2

REPORT INFORMATION
  Report Type: 
  Country: None (occurrence: None)
  Receive Date: 20110620
  Receipt Date: 20110609
  Transmission Date: 20111010
  Serious: Yes (Other)
  Sender: FDA-Public Use
  Company Number: CN-ASTRAZENECA-2011SE35091

PATIENT
  Age: 33 Year
  Sex: Male

DRUGS (1)
  1. DIPRIVAN [Suspect]
     Indication: SEDATION
     Dosage: DOSE OF 0.5-4.0MG/KG PER HOUR
     Route: 042

REACTIONS (2)
  - HYPERTRIGLYCERIDAEMIA [None]
  - HYPERLIPIDAEMIA [None]
